FAERS Safety Report 6696828-8 (Version None)
Quarter: 2010Q2

REPORT INFORMATION
  Report Type: 
  Country: None (occurrence: None)
  Receive Date: 20100421
  Receipt Date: 20100201
  Transmission Date: 20101027
  Serious: No
  Sender: FDA-Public Use
  Company Number: US-000018

PATIENT
  Sex: Female
  Weight: 94.3482 kg

DRUGS (16)
  1. KUVAN [Suspect]
     Indication: PHENYLKETONURIA
     Dosage: 1900 MG QD ORAL
     Route: 048
     Dates: start: 20080601
  2. DIOVAN [Concomitant]
  3. LOVAZA [Concomitant]
  4. NEXIUM [Concomitant]
  5. ZYRTEC [Concomitant]
  6. VIVELLE-DOT [Concomitant]
  7. SINGULAIR [Concomitant]
  8. COD LIVER OIL [Concomitant]
  9. PHENERGAN [Concomitant]
  10. CALCIUM PLUS [Concomitant]
  11. DAILY MULTIVITAMIN [Concomitant]
  12. CINNAMON [Concomitant]
  13. PLAQUENIL [Concomitant]
  14. PAXIL [Concomitant]
  15. ALLERGY MEDICATION [Concomitant]
  16. UNSPECIFIED HERBAL [Concomitant]

REACTIONS (6)
  - ABDOMINAL PAIN UPPER [None]
  - DECREASED APPETITE [None]
  - DIARRHOEA [None]
  - GASTROENTERITIS VIRAL [None]
  - NAUSEA [None]
  - VOMITING [None]
